FAERS Safety Report 18313259 (Version 1)
Quarter: 2020Q3

REPORT INFORMATION
  Report Type: Spontaneous
  Country: FR (occurrence: FR)
  Receive Date: 20200925
  Receipt Date: 20200925
  Transmission Date: 20201103
  Serious: Yes (Hospitalization)
  Sender: FDA-Public Use
  Company Number: FR-CADILA HEALTHCARE LIMITED-FR-ZYDUS-023847

PATIENT

DRUGS (7)
  1. DECTANCYL [Suspect]
     Active Substance: DEXAMETHASONE
     Indication: ACUTE LYMPHOCYTIC LEUKAEMIA
     Dosage: 0.5 MG TABLET, 4.5 MG / DAY 5 DAYS A MONTH
     Route: 048
     Dates: start: 20160713, end: 20180402
  2. GABAPENTINE [Suspect]
     Active Substance: GABAPENTIN
     Indication: NEURALGIA
     Dosage: 900 MILLIGRAM,(INTERVAL :1 DAYS)
     Route: 048
     Dates: start: 20160710, end: 20180404
  3. BACTRIM [Suspect]
     Active Substance: SULFAMETHOXAZOLE\TRIMETHOPRIM
     Indication: PROPHYLAXIS
     Dosage: 6 DOSAGE FORM,INFANTS AND CHILDREN, ORAL SUSPENSION,(INTERVAL :1 WEEKS)
     Route: 048
     Dates: start: 20160704
  4. PURINETHOL [Suspect]
     Active Substance: MERCAPTOPURINE
     Indication: ACUTE LYMPHOCYTIC LEUKAEMIA
     Dosage: 300 MILLIGRAM,50 MG, SCORED TABLET,(INTERVAL :1 WEEKS)
     Route: 048
     Dates: start: 20170529, end: 20180402
  5. METHOTREXAT [Suspect]
     Active Substance: METHOTREXATE
     Indication: ACUTE LYMPHOCYTIC LEUKAEMIA
     Dosage: 30 MILLIGRAM,(INTERVAL :1 MONTHS)
     Route: 048
     Dates: start: 20170529, end: 20180402
  6. ONDANSETRON [Suspect]
     Active Substance: ONDANSETRON
     Indication: PROPHYLAXIS OF NAUSEA AND VOMITING
     Dosage: 4 MILLIGRAM,ACCORD 2 MG / ML SOLUTION FOR INJECTION,(INTERVAL :28 DAYS)
     Route: 042
     Dates: start: 20160723, end: 20180402
  7. VINCRISTINE SULFATE. [Suspect]
     Active Substance: VINCRISTINE SULFATE
     Indication: ACUTE LYMPHOCYTIC LEUKAEMIA
     Dosage: 1.5 MILLIGRAM/SQ. METER,1.5 MG / M2 EVERY 4 WEEKS,(INTERVAL :4 WEEKS)
     Route: 042
     Dates: start: 20160708, end: 20180402

REACTIONS (1)
  - Pancreatitis acute [Recovering/Resolving]

NARRATIVE: CASE EVENT DATE: 20180402
